FAERS Safety Report 8302271-8 (Version None)
Quarter: 2012Q2

REPORT INFORMATION
  Report Type: 
  Country: None (occurrence: None)
  Receive Date: 20120420
  Receipt Date: 20120410
  Transmission Date: 20120825
  Serious: Yes (Life-Threatening, Hospitalization)
  Sender: FDA-Public Use
  Company Number: US-JNJFOC-20120302468

PATIENT
  Sex: Male
  Weight: 75.3 kg

DRUGS (24)
  1. REMICADE [Suspect]
     Route: 042
     Dates: start: 20101228
  2. REMICADE [Suspect]
     Route: 042
     Dates: start: 20110503
  3. REMICADE [Suspect]
     Route: 042
     Dates: start: 20100618
  4. REMICADE [Suspect]
     Route: 042
     Dates: start: 20100420
  5. REMICADE [Suspect]
     Route: 042
     Dates: start: 20091222
  6. ASACOL [Concomitant]
     Indication: COLITIS ULCERATIVE
     Dates: start: 20021220
  7. NORVASC [Concomitant]
     Indication: HYPERTENSION
     Dosage: START OF THERAPY GREATER THAN 5 YEARS
  8. REMICADE [Suspect]
     Route: 042
     Dates: start: 20101012
  9. REMICADE [Suspect]
     Route: 042
     Dates: start: 20110913
  10. AMBISOME [Suspect]
     Indication: HISTOPLASMOSIS DISSEMINATED
     Dates: start: 20120101
  11. REMICADE [Suspect]
     Indication: COLITIS ULCERATIVE
     Route: 042
     Dates: start: 20100831
  12. REMICADE [Suspect]
     Route: 042
     Dates: start: 20110804
  13. REMICADE [Suspect]
     Route: 042
     Dates: start: 20111025
  14. REMICADE [Suspect]
     Route: 042
     Dates: start: 20110208
  15. REMICADE [Suspect]
     Route: 042
     Dates: start: 20100720
  16. REMICADE [Suspect]
     Route: 042
     Dates: start: 20110322
  17. MERCAPTOPURINE [Concomitant]
     Dosage: INTERMITTENT USE
     Dates: start: 20060101, end: 20120101
  18. PREDNISONE TAB [Concomitant]
     Indication: COLITIS ULCERATIVE
     Dates: start: 20080101
  19. COUMADIN [Concomitant]
     Indication: MESENTERIC VEIN THROMBOSIS
     Dosage: VARIABLE DOSES
     Dates: start: 20090101
  20. REMICADE [Suspect]
     Route: 042
     Dates: start: 20101110
  21. REMICADE [Suspect]
     Route: 042
     Dates: start: 20110614
  22. REMICADE [Suspect]
     Route: 042
     Dates: start: 20100112
  23. REMICADE [Suspect]
     Route: 042
     Dates: start: 20100223
  24. MERCAPTOPURINE [Concomitant]
     Indication: COLITIS ULCERATIVE
     Dates: start: 20020101, end: 20060101

REACTIONS (12)
  - RENAL FAILURE ACUTE [None]
  - HEPATIC HAEMATOMA [None]
  - DISSEMINATED INTRAVASCULAR COAGULATION [None]
  - ATRIAL FIBRILLATION [None]
  - HEPATIC ENCEPHALOPATHY [None]
  - HERPES OESOPHAGITIS [None]
  - HISTIOCYTOSIS HAEMATOPHAGIC [None]
  - GASTROINTESTINAL HAEMORRHAGE [None]
  - HEPATITIS ACUTE [None]
  - HISTOPLASMOSIS DISSEMINATED [None]
  - SEPSIS [None]
  - EPSTEIN-BARR VIRUS INFECTION [None]
